FAERS Safety Report 5925762-3 (Version None)
Quarter: 2008Q4

REPORT INFORMATION
  Report Type: 
  Country: None (occurrence: None)
  Receive Date: 20081021
  Receipt Date: 20081017
  Transmission Date: 20090506
  Serious: Yes (Life-Threatening, Hospitalization)
  Sender: FDA-Public Use
  Company Number: CH-SANOFI-SYNTHELABO-F01200801597

PATIENT
  Sex: Female

DRUGS (6)
  1. IRINOTECAN HYDROCHLORIDE [Suspect]
     Route: 065
     Dates: start: 20081008, end: 20081008
  2. CETUXIMAB [Suspect]
     Route: 065
     Dates: start: 20081008, end: 20081008
  3. BEVACIZUMAB [Suspect]
     Route: 065
  4. LEUCOVORIN CALCIUM [Suspect]
     Route: 065
     Dates: start: 20081008, end: 20081008
  5. FLUOROURACIL [Suspect]
     Route: 065
     Dates: start: 20081008, end: 20081008
  6. OXALIPLATIN [Suspect]
     Indication: COLORECTAL CANCER
     Route: 065

REACTIONS (2)
  - DIARRHOEA [None]
  - HYPOVOLAEMIC SHOCK [None]
